FAERS Safety Report 11617156 (Version 2)
Quarter: 2015Q4

REPORT INFORMATION
  Report Type: Report from Study
  Country: IT (occurrence: IT)
  Receive Date: 20151009
  Receipt Date: 20151112
  Transmission Date: 20160304
  Serious: Yes (Hospitalization, Other)
  Sender: FDA-Public Use
  Company Number: IT-APOPHARMA-2015AP012382

PATIENT
  Age: 28 Year
  Sex: Female
  Weight: 29 kg

DRUGS (8)
  1. RANITIDINE [Concomitant]
     Active Substance: RANITIDINE\RANITIDINE HYDROCHLORIDE
     Indication: GASTROINTESTINAL DISORDER
     Dosage: 8 ML, BID
     Route: 048
     Dates: start: 2003
  2. DOMPERIDONE [Concomitant]
     Active Substance: DOMPERIDONE
     Indication: GASTROINTESTINAL DISORDER
     Dosage: 8 ML, TID
     Route: 048
     Dates: start: 2003
  3. BACLOFEN. [Concomitant]
     Active Substance: BACLOFEN
     Indication: PRODUCT USED FOR UNKNOWN INDICATION
     Dosage: 900 UNK, QD
     Route: 037
     Dates: start: 19980301
  4. TRIHEXYPHENIDYL [Concomitant]
     Active Substance: TRIHEXYPHENIDYL
     Indication: DYSTONIA
     Dosage: 21 MG, TID
     Route: 048
     Dates: start: 1990
  5. TETRABENAZINE. [Concomitant]
     Active Substance: TETRABENAZINE
     Indication: DYSTONIA
     Dosage: 18.7 MG, TID
     Route: 048
     Dates: start: 2010
  6. BLINDED DEFERIPRONE [Suspect]
     Active Substance: DEFERIPRONE
     Indication: HEREDITARY DISORDER
     Dosage: 15 MG/KG, BID
     Route: 048
     Dates: start: 20140305, end: 20150824
  7. BLINDED PLACEBO [Suspect]
     Active Substance: INVESTIGATIONAL PRODUCT
     Indication: HEREDITARY DISORDER
     Dosage: 15 MG/KG, BID
     Route: 048
     Dates: start: 20140305, end: 20150824
  8. LEVETIRACETAM. [Concomitant]
     Active Substance: LEVETIRACETAM
     Indication: EPILEPSY
     Dosage: 3 ML, BID
     Route: 048
     Dates: start: 2009

REACTIONS (1)
  - Pneumonia aspiration [Recovered/Resolved with Sequelae]

NARRATIVE: CASE EVENT DATE: 20150824
